FAERS Safety Report 8213629-X (Version None)
Quarter: 2012Q1

REPORT INFORMATION
  Report Type: 
  Country: None (occurrence: None)
  Receive Date: 20120315
  Receipt Date: 20120308
  Transmission Date: 20120608
  Serious: Yes (Disabling, Other)
  Sender: FDA-Public Use
  Company Number: CA-ASTRAZENECA-2010SE34260

PATIENT
  Age: 66 Year
  Sex: Female
  Weight: 54.4 kg

DRUGS (3)
  1. PREVACID [Concomitant]
     Indication: GASTROOESOPHAGEAL REFLUX DISEASE
  2. LORAZEPAM [Concomitant]
     Indication: ANXIETY
  3. ARIMIDEX [Suspect]
     Indication: BREAST CANCER
     Route: 048
     Dates: start: 20081001

REACTIONS (15)
  - BONE PAIN [None]
  - CARPAL TUNNEL SYNDROME [None]
  - EXTRASYSTOLES [None]
  - VISUAL IMPAIRMENT [None]
  - ARTHRALGIA [None]
  - VISION BLURRED [None]
  - DIZZINESS [None]
  - TRIGGER FINGER [None]
  - HEPATIC ENZYME INCREASED [None]
  - PALPITATIONS [None]
  - CHEST DISCOMFORT [None]
  - PAIN [None]
  - JAUNDICE [None]
  - GLAUCOMA [None]
  - PAIN IN EXTREMITY [None]
